FAERS Safety Report 21748591 (Version 6)
Quarter: 2024Q2

REPORT INFORMATION
  Report Type: Spontaneous
  Country: AU (occurrence: AU)
  Receive Date: 20221219
  Receipt Date: 20240412
  Transmission Date: 20240716
  Serious: Yes (Hospitalization, Other)
  Sender: FDA-Public Use
  Company Number: AU-TASMAN PHARMA, INC.-2022TSM00937

PATIENT
  Sex: Female
  Weight: 83.1 kg

DRUGS (33)
  1. CLOZAPINE [Suspect]
     Active Substance: CLOZAPINE
     Dosage: 450 MG
     Dates: start: 20150811, end: 20151129
  2. CLOZAPINE [Suspect]
     Active Substance: CLOZAPINE
     Dosage: 450 MG
     Dates: start: 20151229, end: 20160829
  3. CLOZAPINE [Suspect]
     Active Substance: CLOZAPINE
     Dosage: 450 MG
     Dates: start: 20160831, end: 20160906
  4. CLOZAPINE [Suspect]
     Active Substance: CLOZAPINE
     Dosage: 450 MG
     Dates: start: 20160928, end: 20170427
  5. CLOZAPINE [Suspect]
     Active Substance: CLOZAPINE
     Dosage: 450 MG
     Dates: start: 20170510, end: 20171023
  6. CLOZAPINE [Suspect]
     Active Substance: CLOZAPINE
     Dosage: 400 MG
     Dates: start: 20171024, end: 20180604
  7. CLOZAPINE [Suspect]
     Active Substance: CLOZAPINE
     Dosage: 450 MG
     Dates: start: 20180605, end: 20190407
  8. CLOZAPINE [Suspect]
     Active Substance: CLOZAPINE
     Dosage: 450 MG
     Dates: start: 20190416, end: 20200804
  9. CLOZAPINE [Suspect]
     Active Substance: CLOZAPINE
     Dosage: 425 MG
     Dates: start: 20200805, end: 20210316
  10. CLOZAPINE [Suspect]
     Active Substance: CLOZAPINE
     Dosage: 400 MG
     Dates: start: 20210317, end: 20220315
  11. CLOZAPINE [Suspect]
     Active Substance: CLOZAPINE
     Dosage: 375 MG
     Dates: start: 20220316, end: 20220418
  12. CLOZAPINE [Suspect]
     Active Substance: CLOZAPINE
     Dosage: 350 MG
     Dates: start: 20220419, end: 20220707
  13. CLOZAPINE [Suspect]
     Active Substance: CLOZAPINE
     Dosage: 300 MG
     Dates: start: 20220708, end: 20220925
  14. CLOZAPINE [Suspect]
     Active Substance: CLOZAPINE
     Dosage: 250 MG
     Dates: start: 20221005, end: 20221025
  15. CLOZAPINE [Suspect]
     Active Substance: CLOZAPINE
     Dosage: 250 MG
     Dates: start: 20221102, end: 20221129
  16. CLOZAPINE [Suspect]
     Active Substance: CLOZAPINE
     Dosage: 125 MG
     Dates: start: 20221215, end: 20221220
  17. CLOZAPINE [Suspect]
     Active Substance: CLOZAPINE
     Dosage: 200 MG
     Dates: start: 20230808, end: 20231002
  18. CLOZAPINE [Suspect]
     Active Substance: CLOZAPINE
     Dosage: 200 MG
     Dates: start: 20231031
  19. CLOZAPINE [Suspect]
     Active Substance: CLOZAPINE
     Dosage: 450 MG
     Dates: start: 20151130, end: 20151228
  20. CLOZAPINE [Suspect]
     Active Substance: CLOZAPINE
     Dosage: 450 MG
     Dates: start: 20160830, end: 20160830
  21. CLOZAPINE [Suspect]
     Active Substance: CLOZAPINE
     Dosage: 450 MG
     Dates: start: 20160907, end: 20160927
  22. CLOZAPINE [Suspect]
     Active Substance: CLOZAPINE
     Dosage: 450 MG
     Dates: start: 20170428, end: 20170509
  23. CLOZAPINE [Suspect]
     Active Substance: CLOZAPINE
     Dosage: 450 MG
     Dates: start: 20190408, end: 20190415
  24. CLOZAPINE [Suspect]
     Active Substance: CLOZAPINE
     Dosage: 200 MG
     Dates: start: 20230709, end: 20230807
  25. CLOZAPINE [Suspect]
     Active Substance: CLOZAPINE
     Dosage: 250 MG
     Dates: start: 20220926, end: 20221004
  26. CLOZAPINE [Suspect]
     Active Substance: CLOZAPINE
     Dosage: 250 MG
     Dates: start: 20221026, end: 20221101
  27. CLOZAPINE [Suspect]
     Active Substance: CLOZAPINE
     Dosage: 125 MG
     Dates: start: 20221221, end: 20221222
  28. CLOZAPINE [Suspect]
     Active Substance: CLOZAPINE
     Dosage: UNK
     Dates: start: 2023
  29. VERSACLOZ [Suspect]
     Active Substance: CLOZAPINE
     Dosage: UNK
     Dates: start: 20221208, end: 20221214
  30. VERSACLOZ [Suspect]
     Active Substance: CLOZAPINE
     Dosage: 150 MG
     Dates: start: 20221223, end: 20230102
  31. VERSACLOZ [Suspect]
     Active Substance: CLOZAPINE
     Dosage: 175 MG
     Dates: start: 20230103, end: 20230216
  32. VERSACLOZ [Suspect]
     Active Substance: CLOZAPINE
     Dosage: 200 MG
     Dates: start: 20230217, end: 20230708
  33. VERSACLOZ [Suspect]
     Active Substance: CLOZAPINE
     Dosage: 200 MG
     Dates: start: 20231003, end: 20231030

REACTIONS (8)
  - Hospitalisation [Unknown]
  - Lower respiratory tract infection [Unknown]
  - Leukopenia [Recovered/Resolved]
  - Neutropenia [Recovered/Resolved]
  - Influenza [Unknown]
  - White blood cell count decreased [Recovered/Resolved]
  - Neutrophil count decreased [Recovered/Resolved]
  - Unevaluable event [Unknown]

NARRATIVE: CASE EVENT DATE: 20160830
